FAERS Safety Report 19209063 (Version 8)
Quarter: 2022Q4

REPORT INFORMATION
  Report Type: Report from Study
  Country: US (occurrence: US)
  Receive Date: 20210503
  Receipt Date: 20221014
  Transmission Date: 20230112
  Serious: Yes (Hospitalization, Other)
  Sender: FDA-Public Use
  Company Number: US-TAKEDA-2021TUS027356

PATIENT
  Age: 62 Year
  Sex: Female

DRUGS (16)
  1. TEDUGLUTIDE [Suspect]
     Active Substance: TEDUGLUTIDE
     Indication: Short-bowel syndrome
     Dosage: 1.81 MILLIGRAM, QD
     Route: 058
     Dates: start: 20200806
  2. TEDUGLUTIDE [Suspect]
     Active Substance: TEDUGLUTIDE
     Indication: Short-bowel syndrome
     Dosage: 1.81 MILLIGRAM, QD
     Route: 058
     Dates: start: 20200806
  3. TEDUGLUTIDE [Suspect]
     Active Substance: TEDUGLUTIDE
     Indication: Short-bowel syndrome
     Dosage: 1.81 MILLIGRAM, QD
     Route: 058
     Dates: start: 20200806
  4. TEDUGLUTIDE [Suspect]
     Active Substance: TEDUGLUTIDE
     Indication: Short-bowel syndrome
     Dosage: 1.81 MILLIGRAM, QD
     Route: 058
     Dates: start: 20200806
  5. TEDUGLUTIDE [Suspect]
     Active Substance: TEDUGLUTIDE
     Dosage: 0.203 MILLIGRAM, QD
     Route: 058
     Dates: start: 20200924
  6. TEDUGLUTIDE [Suspect]
     Active Substance: TEDUGLUTIDE
     Dosage: 0.203 MILLIGRAM, QD
     Route: 058
     Dates: start: 20200924
  7. TEDUGLUTIDE [Suspect]
     Active Substance: TEDUGLUTIDE
     Dosage: 0.203 MILLIGRAM, QD
     Route: 058
     Dates: start: 20200924
  8. TEDUGLUTIDE [Suspect]
     Active Substance: TEDUGLUTIDE
     Dosage: 0.203 MILLIGRAM, QD
     Route: 058
     Dates: start: 20200924
  9. TEDUGLUTIDE [Suspect]
     Active Substance: TEDUGLUTIDE
     Dosage: 1.81 MILLIGRAM, QD
     Route: 058
     Dates: start: 20200925
  10. TEDUGLUTIDE [Suspect]
     Active Substance: TEDUGLUTIDE
     Dosage: 1.81 MILLIGRAM, QD
     Route: 058
     Dates: start: 20200925
  11. TEDUGLUTIDE [Suspect]
     Active Substance: TEDUGLUTIDE
     Dosage: 1.81 MILLIGRAM, QD
     Route: 058
     Dates: start: 20200925
  12. TEDUGLUTIDE [Suspect]
     Active Substance: TEDUGLUTIDE
     Dosage: 1.81 MILLIGRAM, QD
     Route: 058
     Dates: start: 20200925
  13. TEDUGLUTIDE [Suspect]
     Active Substance: TEDUGLUTIDE
     Dosage: 1.81 MILLIGRAM, QD
     Route: 058
     Dates: start: 202107
  14. TEDUGLUTIDE [Suspect]
     Active Substance: TEDUGLUTIDE
     Dosage: 1.81 MILLIGRAM, QD
     Route: 058
     Dates: start: 202107
  15. TEDUGLUTIDE [Suspect]
     Active Substance: TEDUGLUTIDE
     Dosage: 1.81 MILLIGRAM, QD
     Route: 058
     Dates: start: 202107
  16. TEDUGLUTIDE [Suspect]
     Active Substance: TEDUGLUTIDE
     Dosage: 1.81 MILLIGRAM, QD
     Route: 058
     Dates: start: 202107

REACTIONS (11)
  - Ileostomy closure [Unknown]
  - Renal disorder [Unknown]
  - Blood potassium abnormal [Unknown]
  - Thrombosis [Unknown]
  - Dehydration [Unknown]
  - Device occlusion [Unknown]
  - Fistula discharge [Unknown]
  - Feeding disorder [Unknown]
  - Weight fluctuation [Unknown]
  - Fluid imbalance [Unknown]
  - Product dose omission issue [Unknown]

NARRATIVE: CASE EVENT DATE: 20210421
